FAERS Safety Report 8641274 (Version 3)
Quarter: 2012Q4

REPORT INFORMATION
  Report Type: 
  Country: SE (occurrence: SE)
  Receive Date: 20120628
  Receipt Date: 20121002
  Transmission Date: 20130627
  Serious: Yes (Other)
  Sender: FDA-Public Use
  Company Number: SE-ELI_LILLY_AND_COMPANY-SE201206005938

PATIENT
  Age: 12 Year
  Sex: Female
  Weight: 50 kg

DRUGS (2)
  1. STRATTERA [Suspect]
     Indication: ATTENTION DEFICIT/HYPERACTIVITY DISORDER
     Dosage: 25 mg, unknown
     Route: 065
     Dates: start: 20120402
  2. STRATTERA [Suspect]
     Dosage: 40 mg, unknown
     Route: 065
     Dates: end: 20120503

REACTIONS (5)
  - Suicidal ideation [Recovered/Resolved]
  - Agitation [Recovered/Resolved]
  - Depression [Recovered/Resolved]
  - Irritability [Recovered/Resolved]
  - Aggression [Recovered/Resolved]
